FAERS Safety Report 9505675 (Version 1)
Quarter: 2013Q1

REPORT INFORMATION
  Report Type: Spontaneous
  Country: US (occurrence: None)
  Receive Date: 20130220
  Receipt Date: 20130220
  Transmission Date: 20140127
  Serious: No
  Sender: FDA-Public Use
  Company Number: 1000040000

PATIENT
  Age: 59 Year
  Sex: Female

DRUGS (2)
  1. VIBRYD [Suspect]
     Indication: DEPRESSION
     Dosage: 10MG (10MG, 1IN 1D) ORAL
     Route: 048
     Dates: start: 20121025
  2. NEXIUM (NEXIUM) (NEXIUM) [Concomitant]

REACTIONS (5)
  - Tremor [None]
  - Insomnia [None]
  - Dizziness [None]
  - Hyperhidrosis [None]
  - Feeling hot [None]
